FAERS Safety Report 5389189-8 (Version None)
Quarter: 2007Q3

REPORT INFORMATION
  Report Type: 
  Country: None (occurrence: None)
  Receive Date: 20070713
  Receipt Date: 20070706
  Transmission Date: 20080115
  Serious: Yes (Life-Threatening, Hospitalization)
  Sender: FDA-Public Use
  Company Number: CLOF-10556

PATIENT
  Age: 56 Year
  Sex: Female
  Weight: 55.6 kg

DRUGS (13)
  1. CLOFARABINE. MFR:  GENZYME [Suspect]
     Indication: MYELOID LEUKAEMIA
     Dosage: 31 MG DAILY IV
     Route: 042
     Dates: start: 20070502, end: 20070503
  2. CLOFARABINE. MFR:  GENZYME [Suspect]
     Indication: MYELOID LEUKAEMIA
     Dosage: 31 MG DAILY IV
     Route: 042
     Dates: start: 20070509, end: 20070510
  3. CYCLOPHOSPHAMIDE [Suspect]
     Indication: MYELOID LEUKAEMIA
     Dosage: 930 MG DAILY IV
     Route: 042
     Dates: start: 20070501, end: 20070503
  4. CYCLOPHOSPHAMIDE [Suspect]
     Indication: MYELOID LEUKAEMIA
     Dosage: 930 MG DAILY IV
     Route: 042
     Dates: start: 20070509, end: 20070510
  5. PIPERACILLIN AND TAZOBACTAM [Concomitant]
  6. VALACYCLOVIR [Concomitant]
  7. POTASSIUM CHLORIDE [Concomitant]
  8. ACETAMINOPHEN [Concomitant]
  9. AMBISOME [Concomitant]
  10. FUROSEMIDE [Concomitant]
  11. HEPARIN [Concomitant]
  12. LORAZEPAM [Concomitant]
  13. DAPSONE [Concomitant]

REACTIONS (13)
  - ANAEMIA [None]
  - BLOOD BILIRUBIN INCREASED [None]
  - BLOOD CULTURE POSITIVE [None]
  - ENTEROCOCCAL BACTERAEMIA [None]
  - ENTEROCOCCAL INFECTION [None]
  - FEBRILE NEUTROPENIA [None]
  - FLUID OVERLOAD [None]
  - LUNG DISORDER [None]
  - NEUTROPENIA [None]
  - PLEURAL EFFUSION [None]
  - PNEUMONIA FUNGAL [None]
  - PULMONARY HYPERTENSION [None]
  - RESPIRATORY DISORDER [None]
